FAERS Safety Report 8349226-5 (Version None)
Quarter: 2012Q2

REPORT INFORMATION
  Report Type: 
  Country: None (occurrence: None)
  Receive Date: 20120508
  Receipt Date: 20120508
  Transmission Date: 20120825
  Serious: Yes (Other)
  Sender: FDA-Public Use
  Company Number: None

PATIENT
  Sex: Female
  Weight: 71.6683 kg

DRUGS (1)
  1. XARELTO [Suspect]
     Indication: ATRIAL FIBRILLATION
     Dosage: 20MG. 1 DAILY ORALLY
     Route: 048
     Dates: start: 20120301

REACTIONS (3)
  - NERVOUSNESS [None]
  - CONDITION AGGRAVATED [None]
  - ARTHRITIS [None]
